FAERS Safety Report 16779713 (Version 2)
Quarter: 2019Q3

REPORT INFORMATION
  Report Type: Spontaneous
  Country: NZ (occurrence: NZ)
  Receive Date: 20190906
  Receipt Date: 20190910
  Transmission Date: 20191005
  Serious: Yes (Death, Other)
  Sender: FDA-Public Use
  Company Number: NZ-MYLANLABS-2019M1083537

PATIENT
  Age: 50 Year
  Sex: Male

DRUGS (1)
  1. CLOZARIL [Suspect]
     Active Substance: CLOZAPINE
     Indication: SCHIZOPHRENIA
     Dosage: UNK
     Route: 048
     Dates: start: 20160426

REACTIONS (3)
  - Diabetes mellitus [Unknown]
  - Death [Fatal]
  - Obesity [Unknown]

NARRATIVE: CASE EVENT DATE: 20190827
